FAERS Safety Report 18974153 (Version 2)
Quarter: 2021Q2

REPORT INFORMATION
  Report Type: Spontaneous
  Country: JP (occurrence: JP)
  Receive Date: 20210305
  Receipt Date: 20210405
  Transmission Date: 20210717
  Serious: Yes (Other)
  Sender: FDA-Public Use
  Company Number: JP-009507513-2103JPN000052J

PATIENT
  Age: 9 Decade

DRUGS (2)
  1. KEYTRUDA [Suspect]
     Active Substance: PEMBROLIZUMAB
     Indication: HEAD AND NECK CANCER
     Dosage: 200 MILLIGRAM, Q3W
     Route: 041
     Dates: start: 202012
  2. KEYTRUDA [Suspect]
     Active Substance: PEMBROLIZUMAB
     Dosage: 200 MILLIGRAM, Q3W
     Route: 041

REACTIONS (1)
  - Tumour pseudoprogression [Recovering/Resolving]
